FAERS Safety Report 25746785 (Version 1)
Quarter: 2025Q3

REPORT INFORMATION
  Report Type: Spontaneous
  Country: US (occurrence: US)
  Receive Date: 20250901
  Receipt Date: 20250901
  Transmission Date: 20251020
  Serious: Yes (Other)
  Sender: MERCK SHARP & DOHME LLC
  Company Number: US-009507513-2324865

PATIENT
  Age: 53 Year
  Sex: Male
  Weight: 76.385 kg

DRUGS (14)
  1. KEYTRUDA [Suspect]
     Active Substance: PEMBROLIZUMAB
     Indication: Clear cell renal cell carcinoma
     Dates: start: 202411
  2. LENVIMA [Suspect]
     Active Substance: LENVATINIB
     Indication: Clear cell renal cell carcinoma
     Dates: start: 202411, end: 202504
  3. Tujeo [Concomitant]
     Indication: Steroid diabetes
  4. ACETAMINOPHEN [Concomitant]
     Active Substance: ACETAMINOPHEN
  5. Calcium-500 [Concomitant]
  6. FUROSEMIDE [Concomitant]
     Active Substance: FUROSEMIDE
  7. LYRICA [Concomitant]
     Active Substance: PREGABALIN
  8. MAGNESIUM [Concomitant]
     Active Substance: MAGNESIUM
  9. MORPHINE [Concomitant]
     Active Substance: MORPHINE
  10. ONDANSETRON [Concomitant]
     Active Substance: ONDANSETRON
  11. OXYCODONE [Concomitant]
     Active Substance: OXYCODONE
  12. REMERON [Concomitant]
     Active Substance: MIRTAZAPINE
  13. XARELTO [Concomitant]
     Active Substance: RIVAROXABAN
  14. WELIREG [Concomitant]
     Active Substance: BELZUTIFAN

REACTIONS (26)
  - Vertebroplasty [Unknown]
  - Fluid retention [Unknown]
  - Lethargy [Unknown]
  - Decreased activity [Unknown]
  - Cachexia [Unknown]
  - Radiotherapy [Recovered/Resolved]
  - Proteinuria [Unknown]
  - Bradyphrenia [Unknown]
  - Malnutrition [Unknown]
  - Fatigue [Unknown]
  - Asthenia [Unknown]
  - Dry mouth [Unknown]
  - Joint swelling [Unknown]
  - Peripheral swelling [Unknown]
  - Weight decreased [Unknown]
  - Constipation [Unknown]
  - Dizziness [Unknown]
  - Oxygen saturation abnormal [Unknown]
  - Cancer pain [Unknown]
  - Pain in extremity [Unknown]
  - Gait disturbance [Unknown]
  - Mobility decreased [Unknown]
  - Diarrhoea [Recovered/Resolved]
  - Depression [Unknown]
  - Inflammation [Unknown]
  - Anaemia [Unknown]

NARRATIVE: CASE EVENT DATE: 20241125
